FAERS Safety Report 4776484-6 (Version None)
Quarter: 2005Q3

REPORT INFORMATION
  Report Type: 
  Country: None (occurrence: None)
  Receive Date: 20050922
  Receipt Date: 20050912
  Transmission Date: 20060218
  Serious: Yes (Hospitalization, Disabling)
  Sender: FDA-Public Use
  Company Number: US-MERCK-0509USA01869

PATIENT
  Age: 49 Year
  Sex: Male
  Weight: 61 kg

DRUGS (8)
  1. VIOXX [Suspect]
     Indication: OSTEOARTHRITIS
     Route: 048
     Dates: start: 20000803, end: 20030920
  2. DILANTIN [Concomitant]
     Indication: EPILEPSY
     Route: 065
     Dates: start: 19680101
  3. DILANTIN [Concomitant]
     Route: 065
     Dates: start: 19680101
  4. PHENOBARBITAL [Concomitant]
     Indication: EPILEPSY
     Route: 065
     Dates: start: 19680101
  5. ATROVENT [Concomitant]
     Route: 065
  6. FOLIC ACID [Concomitant]
     Route: 065
     Dates: start: 19980301
  7. ZITHROMAX [Concomitant]
     Route: 065
  8. AMOXICILLIN [Concomitant]
     Route: 065

REACTIONS (6)
  - ACUTE MYOCARDIAL INFARCTION [None]
  - BLOOD CHOLESTEROL INCREASED [None]
  - CHEST PAIN [None]
  - CORONARY ARTERY DISEASE [None]
  - HYPERTENSION [None]
  - MUSCULOSKELETAL DISORDER [None]
